FAERS Safety Report 23093289 (Version 2)
Quarter: 2024Q1

REPORT INFORMATION
  Report Type: Spontaneous
  Country: US (occurrence: US)
  Receive Date: 20231022
  Receipt Date: 20240305
  Transmission Date: 20240410
  Serious: No
  Sender: FDA-Public Use
  Company Number: US-SA-SAC20231020000428

PATIENT
  Age: 32 Year
  Sex: Female

DRUGS (1)
  1. DUPIXENT [Suspect]
     Active Substance: DUPILUMAB
     Indication: Nasal polyps
     Dosage: 300 MG, QOW
     Route: 058
     Dates: start: 202309

REACTIONS (4)
  - Anosmia [Unknown]
  - Dyspnoea [Unknown]
  - Sneezing [Unknown]
  - Hypersensitivity [Unknown]
